FAERS Safety Report 20257853 (Version 6)
Quarter: 2022Q2

REPORT INFORMATION
  Report Type: Spontaneous
  Country: JP (occurrence: JP)
  Receive Date: 20211230
  Receipt Date: 20220406
  Transmission Date: 20220720
  Serious: Yes (Death, Other)
  Sender: FDA-Public Use
  Company Number: JP-ONO-2021JP032735

PATIENT

DRUGS (11)
  1. ONGENTYS [Suspect]
     Active Substance: OPICAPONE
     Indication: Parkinson^s disease
     Dosage: 25 MILLIGRAM, DAILY
     Route: 048
     Dates: start: 20210907, end: 20211225
  2. MAGNESIUM OXIDE [Concomitant]
     Active Substance: MAGNESIUM OXIDE
     Dosage: UNKNOWN
  3. CARBIDOPA\LEVODOPA [Concomitant]
     Active Substance: CARBIDOPA\LEVODOPA
     Dosage: UNKNOWN
  4. ASPIRIN [Concomitant]
     Active Substance: ASPIRIN
     Dosage: UNKNOWN
  5. LANSOPRAZOLE [Concomitant]
     Active Substance: LANSOPRAZOLE
     Dosage: UNKNOWN
  6. CARBOCYSTEINE [Concomitant]
     Active Substance: CARBOCYSTEINE
     Dosage: UNKNOWN
  7. REBAMIPIDE [Concomitant]
     Active Substance: REBAMIPIDE
     Dosage: UNKNOWN
  8. AMBROXOL HYDROCHLORIDE [Concomitant]
     Active Substance: AMBROXOL HYDROCHLORIDE
     Dosage: UNKNOWN
  9. PRAMIPEXOLE [Concomitant]
     Active Substance: PRAMIPEXOLE
     Dosage: UNKNOWN
  10. NEUPRO [Concomitant]
     Active Substance: ROTIGOTINE
     Dosage: UNKNOWN
  11. CARBIDOPA\LEVODOPA [Concomitant]
     Active Substance: CARBIDOPA\LEVODOPA

REACTIONS (5)
  - Cardiac failure congestive [Fatal]
  - Renal impairment [Not Recovered/Not Resolved]
  - Pneumonia bacterial [Not Recovered/Not Resolved]
  - Hypoglycaemia [Not Recovered/Not Resolved]
  - General physical health deterioration [Not Recovered/Not Resolved]

NARRATIVE: CASE EVENT DATE: 20210101
